FAERS Safety Report 7767495-7 (Version None)
Quarter: 2011Q3

REPORT INFORMATION
  Report Type: 
  Country: None (occurrence: None)
  Receive Date: 20110922
  Receipt Date: 20101028
  Transmission Date: 20111222
  Serious: No
  Sender: FDA-Public Use
  Company Number: US-BAYER-201040392NA

PATIENT
  Age: 40 Year
  Sex: Female

DRUGS (1)
  1. BETASERON [Suspect]
     Indication: MULTIPLE SCLEROSIS

REACTIONS (7)
  - PYREXIA [None]
  - NAUSEA [None]
  - FEELING COLD [None]
  - ABDOMINAL PAIN [None]
  - FEELING HOT [None]
  - PAIN [None]
  - FATIGUE [None]
